FAERS Safety Report 9697438 (Version 1)
Quarter: 2013Q4

REPORT INFORMATION
  Report Type: Spontaneous
  Country: US (occurrence: US)
  Receive Date: 20131120
  Receipt Date: 20131120
  Transmission Date: 20140711
  Serious: No
  Sender: FDA-Public Use
  Company Number: US-BAYER-2013-139007

PATIENT
  Age: 72 Year
  Sex: Male

DRUGS (4)
  1. AVELOX [Suspect]
     Indication: BACTERIAL INFECTION
     Dosage: 400 MG, QD
     Route: 048
  2. PLAQUENIL [Concomitant]
  3. PANTOPRAZOLE [Concomitant]
  4. XANAX [Concomitant]

REACTIONS (2)
  - Fatigue [Not Recovered/Not Resolved]
  - Asthenia [Not Recovered/Not Resolved]
